FAERS Safety Report 10775608 (Version 1)
Quarter: 2015Q1

REPORT INFORMATION
  Report Type: Other
  Country: US (occurrence: US)
  Receive Date: 20150209
  Receipt Date: 20150209
  Transmission Date: 20150721
  Serious: Yes (Death)
  Sender: FDA-Public Use
  Company Number: US-FRI-1000074280

PATIENT
  Age: 63 Year
  Sex: Male

DRUGS (6)
  1. DOXEPIN [Suspect]
     Active Substance: DOXEPIN
  2. BUSPIRONE [Suspect]
     Active Substance: BUSPIRONE HYDROCHLORIDE
  3. ETHANOL [Suspect]
     Active Substance: ALCOHOL
  4. CARBON MONOXIDE [Suspect]
     Active Substance: CARBON MONOXIDE
  5. CITALOPRAM [Suspect]
     Active Substance: CITALOPRAM HYDROBROMIDE
  6. GABAPENTIN. [Suspect]
     Active Substance: GABAPENTIN

REACTIONS (2)
  - Completed suicide [Fatal]
  - Cardio-respiratory arrest [Fatal]
